FAERS Safety Report 21910006 (Version 3)
Quarter: 2023Q1

REPORT INFORMATION
  Report Type: Spontaneous
  Country: US (occurrence: US)
  Receive Date: 20230125
  Receipt Date: 20230317
  Transmission Date: 20230418
  Serious: Yes (Other)
  Sender: FDA-Public Use
  Company Number: US-PFIZER INC-202300034557

PATIENT
  Age: 76 Year
  Sex: Female
  Weight: 72.12 kg

DRUGS (3)
  1. PREMARIN [Suspect]
     Active Substance: ESTROGENS, CONJUGATED
     Indication: Hysterectomy
     Dosage: 0.625 MG, 1X/DAY (0.625MG TABLET ONCE A DAY AT NIGHT)
     Dates: start: 1996
  2. FENOFIBRATE [Concomitant]
     Active Substance: FENOFIBRATE
     Indication: Blood cholesterol
     Dosage: 160 MG, 1X/DAY
  3. BUPROPION [Concomitant]
     Active Substance: BUPROPION
     Indication: Depression
     Dosage: 150 MG, 1X/DAY (150MG TIME RELEASED ENTERIC COATED TABLET ONCE A DAY)

REACTIONS (10)
  - Pneumonia bacterial [Recovering/Resolving]
  - Pneumonia [Recovered/Resolved]
  - Cough [Unknown]
  - Suspected counterfeit product [Not Recovered/Not Resolved]
  - Feeling hot [Unknown]
  - Hot flush [Recovering/Resolving]
  - Thinking abnormal [Not Recovered/Not Resolved]
  - Headache [Recovering/Resolving]
  - Insomnia [Recovering/Resolving]
  - Night sweats [Unknown]

NARRATIVE: CASE EVENT DATE: 20221101
